FAERS Safety Report 7006511-7 (Version None)
Quarter: 2010Q3

REPORT INFORMATION
  Report Type: 
  Country: None (occurrence: None)
  Receive Date: 20100921
  Receipt Date: 20100921
  Transmission Date: 20110219
  Serious: Yes (Disabling, Other)
  Sender: FDA-Public Use
  Company Number: None

PATIENT
  Sex: Female
  Weight: 113.3993 kg

DRUGS (2)
  1. MIRENA [Suspect]
     Indication: MENORRHAGIA
  2. MIRENA [Suspect]
     Indication: ORAL CONTRACEPTION

REACTIONS (4)
  - BLOOD TEST ABNORMAL [None]
  - DISCOMFORT [None]
  - MUSCULOSKELETAL STIFFNESS [None]
  - PAIN [None]
